FAERS Safety Report 14127841 (Version 1)
Quarter: 2017Q4

REPORT INFORMATION
  Report Type: Spontaneous
  Country: DE (occurrence: DE)
  Receive Date: 20171026
  Receipt Date: 20171026
  Transmission Date: 20180321
  Serious: Yes (Other)
  Sender: FDA-Public Use
  Company Number: DE-TORRENT-00007243

PATIENT
  Age: 1 Day
  Sex: Male
  Weight: 4 kg

DRUGS (3)
  1. FOLIC ACID. [Concomitant]
     Active Substance: FOLIC ACID
  2. CITALOPRAM [Suspect]
     Active Substance: CITALOPRAM HYDROBROMIDE
  3. MIRTAZAPINE. [Suspect]
     Active Substance: MIRTAZAPINE

REACTIONS (3)
  - Pulmonary hypertension [Recovered/Resolved]
  - Foetal exposure during pregnancy [Unknown]
  - Large for dates baby [Unknown]

NARRATIVE: CASE EVENT DATE: 20170126
